FAERS Safety Report 17163804 (Version 1)
Quarter: 2019Q4

REPORT INFORMATION
  Report Type: Spontaneous
  Country: FR (occurrence: FR)
  Receive Date: 20191217
  Receipt Date: 20191217
  Transmission Date: 20200122
  Serious: Yes (Hospitalization)
  Sender: FDA-Public Use
  Company Number: NVSC2019FR066545

PATIENT
  Age: 34 Year
  Sex: Male
  Weight: 79 kg

DRUGS (3)
  1. CLINDAMYCIN. [Suspect]
     Active Substance: CLINDAMYCIN
     Indication: COMPLICATED APPENDICITIS
     Dosage: UNK
     Route: 048
     Dates: start: 20190909, end: 20190910
  2. METRONIDAZOLE. [Suspect]
     Active Substance: METRONIDAZOLE
     Indication: COMPLICATED APPENDICITIS
     Dosage: 1000 MG, QD
     Route: 048
     Dates: start: 20190909, end: 20190917
  3. SPIRAMYCIN [Suspect]
     Active Substance: SPIRAMYCIN
     Indication: COMPLICATED APPENDICITIS
     Dosage: 3 KIU, QD
     Route: 048
     Dates: start: 20190910, end: 20190917

REACTIONS (1)
  - Hypersensitivity [Recovering/Resolving]

NARRATIVE: CASE EVENT DATE: 20190910
